FAERS Safety Report 10238643 (Version 1)
Quarter: 2014Q2

REPORT INFORMATION
  Report Type: Spontaneous
  Country: US (occurrence: None)
  Receive Date: 20140613
  Receipt Date: 20140613
  Transmission Date: 20141212
  Serious: Yes (Other)
  Sender: FDA-Public Use
  Company Number: None

PATIENT
  Age: 69 Year
  Sex: Female
  Weight: 59 kg

DRUGS (5)
  1. BUPROPION 150 MG [Suspect]
     Dosage: 2 TABLETS QD ORAL
     Route: 048
     Dates: start: 20140603, end: 20140611
  2. ACETAMINOPHEN [Concomitant]
  3. VANCOMYCIN [Concomitant]
  4. MULTIVITAMINS [Concomitant]
  5. WARFARIN [Concomitant]

REACTIONS (2)
  - Rash [None]
  - Stevens-Johnson syndrome [None]
